FAERS Safety Report 6915314-0 (Version None)
Quarter: 2010Q3

REPORT INFORMATION
  Report Type: 
  Country: None (occurrence: None)
  Receive Date: 20100809
  Receipt Date: 20091028
  Transmission Date: 20110219
  Serious: No
  Sender: FDA-Public Use
  Company Number: US-ABBOTT-09P-163-0606227-00

PATIENT
  Sex: Female
  Weight: 63.56 kg

DRUGS (4)
  1. DEPAKOTE ER [Suspect]
     Indication: EPILEPSY
     Route: 048
     Dates: start: 19890101
  2. SYNTHROID [Concomitant]
     Indication: HYPOTHYROIDISM
     Route: 048
  3. ALPRAZOLAM [Concomitant]
     Indication: ANXIETY
     Dosage: DOSE UNKNOWN
  4. XANAX [Concomitant]
     Indication: ANXIETY
     Dosage: 10 MG DAILY
     Route: 048

REACTIONS (4)
  - NASOPHARYNGITIS [None]
  - NAUSEA [None]
  - PRODUCT TASTE ABNORMAL [None]
  - SINUSITIS [None]
